FAERS Safety Report 7965749-2 (Version None)
Quarter: 2011Q4

REPORT INFORMATION
  Report Type: 
  Country: None (occurrence: None)
  Receive Date: 20111208
  Receipt Date: 20111130
  Transmission Date: 20120403
  Serious: Yes (Hospitalization)
  Sender: FDA-Public Use
  Company Number: SE-PFIZER INC-2011024707

PATIENT
  Age: 80 Year
  Sex: Female

DRUGS (14)
  1. OMEPRAZOLE [Concomitant]
     Dosage: UNK
  2. SPIRONOLACTONE [Suspect]
     Dosage: UNK
     Route: 048
     Dates: end: 20101123
  3. PRIMPERAN TAB [Concomitant]
     Dosage: UNK
  4. GLYTRIN [Concomitant]
     Dosage: UNK
  5. RAMIPRIL [Suspect]
     Dosage: UNK
     Route: 048
     Dates: end: 20101123
  6. ATORVASTATIN [Concomitant]
     Dosage: UNK
  7. METOPROLOL SUCCINATE [Suspect]
     Indication: OEDEMA DUE TO CARDIAC DISEASE
     Dosage: UNK, DAILY
     Route: 048
     Dates: end: 20101123
  8. ACETAMINOPHEN [Concomitant]
     Dosage: UNK
  9. ACETYLCYSTEIN AL [Concomitant]
     Dosage: UNK
  10. ASPIRIN [Concomitant]
     Dosage: UNK
  11. IPRATROPIUM BROMIDE AND ALBUTEROL SULFATE [Concomitant]
     Dosage: UNK
  12. LEVOTHYROXINE SODIUM [Concomitant]
     Dosage: UNK
  13. FUROSEMIDE [Suspect]
     Indication: OEDEMA DUE TO CARDIAC DISEASE
     Dosage: UNK, DAILY
     Route: 048
     Dates: end: 20101123
  14. DYGRATYL [Concomitant]
     Dosage: UNK

REACTIONS (3)
  - DIZZINESS [None]
  - HYPOTENSION [None]
  - FATIGUE [None]
